FAERS Safety Report 14798618 (Version 1)
Quarter: 2018Q2

REPORT INFORMATION
  Report Type: Spontaneous
  Country: TW (occurrence: TW)
  Receive Date: 20180424
  Receipt Date: 20180424
  Transmission Date: 20180711
  Serious: Yes (Death, Hospitalization, Other)
  Sender: FDA-Public Use
  Company Number: TW-ASTELLAS-2018US019031

PATIENT
  Age: 66 Year
  Sex: Male

DRUGS (1)
  1. XTANDI [Suspect]
     Active Substance: ENZALUTAMIDE
     Indication: PROSTATE CANCER
     Route: 048
     Dates: start: 20171103, end: 20180414

REACTIONS (5)
  - Urinary tract infection [Fatal]
  - Cachexia [Fatal]
  - Metastases to meninges [Fatal]
  - Hydrocephalus [Fatal]
  - Pneumonia [Fatal]

NARRATIVE: CASE EVENT DATE: 20180401
